FAERS Safety Report 8116797-3 (Version None)
Quarter: 2012Q1

REPORT INFORMATION
  Report Type: 
  Country: None (occurrence: None)
  Receive Date: 20120206
  Receipt Date: 20120201
  Transmission Date: 20120608
  Serious: Yes (Hospitalization)
  Sender: FDA-Public Use
  Company Number: PHEH2011US011386

PATIENT
  Sex: Female

DRUGS (2)
  1. EXJADE [Suspect]
     Indication: IRON OVERLOAD
     Dosage: 1250 MG DAILY
     Route: 048
     Dates: start: 20111006
  2. EXJADE [Suspect]
     Dosage: 750 MG, DAILY
     Route: 048
     Dates: start: 20111012

REACTIONS (4)
  - SICKLE CELL ANAEMIA WITH CRISIS [None]
  - NASOPHARYNGITIS [None]
  - PULMONARY OEDEMA [None]
  - DYSPNOEA [None]
